FAERS Safety Report 6135169-4 (Version None)
Quarter: 2009Q1

REPORT INFORMATION
  Report Type: 
  Country: None (occurrence: None)
  Receive Date: 20090327
  Receipt Date: 20090320
  Transmission Date: 20090719
  Serious: Yes (Other)
  Sender: FDA-Public Use
  Company Number: JP-SANOFI-SYNTHELABO-A01200813743

PATIENT
  Sex: Male
  Weight: 70 kg

DRUGS (13)
  1. ALSAZULENE [Concomitant]
     Dosage: UNK
  2. MAGNESIUM OXIDE [Concomitant]
     Dosage: UNK
  3. AMLODIN [Concomitant]
     Dosage: UNK
  4. AVASTIN [Suspect]
     Indication: RECTAL CANCER METASTATIC
     Route: 041
     Dates: start: 20080528, end: 20080528
  5. ELPLAT [Suspect]
     Indication: RECTAL CANCER METASTATIC
     Route: 041
     Dates: start: 20080528, end: 20080528
  6. ISOVORIN [Suspect]
     Indication: RECTAL CANCER METASTATIC
     Dosage: 300 MG
     Route: 041
     Dates: start: 20071128, end: 20081029
  7. FLUOROURACIL [Suspect]
     Indication: RECTAL CANCER METASTATIC
     Route: 042
     Dates: start: 20081001, end: 20081001
  8. NOVO-HEPARIN [Concomitant]
     Dosage: UNK
  9. DEXART [Concomitant]
     Dosage: UNK
  10. KYTRIL [Concomitant]
     Dosage: UNK
  11. CARBAZOCHROME [Concomitant]
     Dosage: UNK
  12. HARNAL [Concomitant]
     Dosage: UNK
  13. AMOBAN [Concomitant]
     Dosage: UNK

REACTIONS (2)
  - NEPHROSCLEROSIS [None]
  - NEPHROTIC SYNDROME [None]
